FAERS Safety Report 5523395-4 (Version None)
Quarter: 2007Q4

REPORT INFORMATION
  Report Type: 
  Country: None (occurrence: None)
  Receive Date: 20071121
  Receipt Date: 20071119
  Transmission Date: 20080405
  Serious: Yes (Hospitalization, Other)
  Sender: FDA-Public Use
  Company Number: FR-BRISTOL-MYERS SQUIBB COMPANY-13987599

PATIENT
  Age: 49 Year
  Sex: Male

DRUGS (3)
  1. AMPHOTERICIN B [Suspect]
     Indication: CRYPTOCOCCOSIS
  2. FLUCYTOSINE [Suspect]
     Indication: CRYPTOCOCCOSIS
  3. FLUCONAZOLE [Suspect]
     Indication: CRYPTOCOCCOSIS

REACTIONS (1)
  - IMMUNE RECONSTITUTION SYNDROME [None]
